FAERS Safety Report 6062657-1 (Version None)
Quarter: 2009Q1

REPORT INFORMATION
  Report Type: 
  Country: None (occurrence: None)
  Receive Date: 20090129
  Receipt Date: 20090126
  Transmission Date: 20090719
  Serious: Yes (Life-Threatening, Hospitalization)
  Sender: FDA-Public Use
  Company Number: 20085898

PATIENT
  Age: 13 Year
  Sex: Female

DRUGS (1)
  1. LIORESAL [Suspect]
     Indication: MUSCLE SPASTICITY
     Dosage: 150-179.9 MCG, DAILY, INTRATHECAL
     Route: 037

REACTIONS (12)
  - ANXIETY [None]
  - APNOEA [None]
  - CATHETER RELATED COMPLICATION [None]
  - DEVICE LEAKAGE [None]
  - DRUG DELIVERY SYSTEM MALFUNCTION [None]
  - INFUSION SITE SCAR [None]
  - LOSS OF CONSCIOUSNESS [None]
  - MUSCULAR WEAKNESS [None]
  - OVERDOSE [None]
  - RESPIRATION ABNORMAL [None]
  - RESPIRATORY DEPRESSION [None]
  - SOMNOLENCE [None]
